FAERS Safety Report 22127673 (Version 1)
Quarter: 2023Q1

REPORT INFORMATION
  Report Type: Spontaneous
  Country: US (occurrence: US)
  Receive Date: 20230323
  Receipt Date: 20230323
  Transmission Date: 20230418
  Serious: No
  Sender: FDA-Public Use
  Company Number: US-ALLERGAN-2307680US

PATIENT
  Age: 82 Year
  Sex: Male

DRUGS (1)
  1. DALVANCE [Suspect]
     Active Substance: DALBAVANCIN
     Indication: Product used for unknown indication
     Dosage: UNK

REACTIONS (3)
  - Chills [Recovering/Resolving]
  - Back pain [Recovering/Resolving]
  - Infusion related reaction [Recovering/Resolving]
